FAERS Safety Report 7494110-2 (Version None)
Quarter: 2011Q2

REPORT INFORMATION
  Report Type: 
  Country: None (occurrence: None)
  Receive Date: 20110520
  Receipt Date: 20110507
  Transmission Date: 20111010
  Serious: Yes (Other)
  Sender: FDA-Public Use
  Company Number: CA-JNJFOC-20110402103

PATIENT
  Sex: Female
  Weight: 60 kg

DRUGS (8)
  1. REMICADE [Suspect]
     Route: 042
     Dates: start: 20110402
  2. SOLU-CORTEF [Suspect]
     Route: 042
     Dates: start: 20110507
  3. REMICADE [Suspect]
     Route: 042
     Dates: start: 20110218
  4. REMICADE [Suspect]
     Indication: CROHN'S DISEASE
     Route: 042
     Dates: start: 20101112
  5. SOLU-CORTEF [Suspect]
     Indication: PREMEDICATION
     Route: 042
     Dates: start: 20110402
  6. BENADRYL [Concomitant]
     Indication: PREMEDICATION
     Dosage: ALSO REPORTED AS 25 MG
     Route: 042
  7. ACETAMINOPHEN [Concomitant]
     Indication: PREMEDICATION
     Route: 048
  8. REMICADE [Suspect]
     Route: 042
     Dates: start: 20110507

REACTIONS (5)
  - DYSPNOEA [None]
  - NAUSEA [None]
  - INFUSION RELATED REACTION [None]
  - FLUSHING [None]
  - VOMITING [None]
